FAERS Safety Report 6806487-9 (Version None)
Quarter: 2010Q2

REPORT INFORMATION
  Report Type: 
  Country: None (occurrence: None)
  Receive Date: 20100629
  Receipt Date: 20080317
  Transmission Date: 20101027
  Serious: No
  Sender: FDA-Public Use
  Company Number: US-PFIZER INC-2008024774

PATIENT
  Sex: Female
  Weight: 61.4 kg

DRUGS (6)
  1. SILDENAFIL CITRATE [Suspect]
     Indication: PULMONARY HYPERTENSION
     Dates: start: 20071001
  2. VICODIN [Concomitant]
  3. LIPITOR [Concomitant]
  4. FUROSEMIDE [Concomitant]
  5. WARFARIN SODIUM [Concomitant]
  6. FOSINOPRIL SODIUM [Concomitant]

REACTIONS (4)
  - ASTHENIA [None]
  - BODY HEIGHT DECREASED [None]
  - FLUSHING [None]
  - SOMNOLENCE [None]
